FAERS Safety Report 8416297-7 (Version None)
Quarter: 2012Q2

REPORT INFORMATION
  Report Type: 
  Country: None (occurrence: None)
  Receive Date: 20120606
  Receipt Date: 20120525
  Transmission Date: 20120825
  Serious: Yes (Hospitalization)
  Sender: FDA-Public Use
  Company Number: JP-ROCHE-1072763

PATIENT
  Sex: Female
  Weight: 45.9 kg

DRUGS (4)
  1. BLINDED PERTUZUMAB [Suspect]
     Indication: BREAST CANCER
     Dosage: INFUSION
     Dates: start: 20120516
  2. HERCEPTIN [Suspect]
     Indication: BREAST CANCER
     Dosage: INFUSION
     Dates: start: 20120516
  3. CARBOPLATIN [Suspect]
     Indication: BREAST CANCER
     Dosage: AUC6
     Dates: start: 20120516
  4. DOCETAXEL [Suspect]
     Indication: BREAST CANCER
     Dosage: INFUSION
     Dates: start: 20120516

REACTIONS (2)
  - MALAISE [None]
  - DECREASED APPETITE [None]
